FAERS Safety Report 8570504-9 (Version None)
Quarter: 2012Q3

REPORT INFORMATION
  Report Type: 
  Country: None (occurrence: None)
  Receive Date: 20120803
  Receipt Date: 20120711
  Transmission Date: 20120928
  Serious: Yes (Other)
  Sender: FDA-Public Use
  Company Number: US-ABBOTT-12P-163-0962869-00

PATIENT
  Age: 17 Year
  Sex: Female
  Weight: 49 kg

DRUGS (10)
  1. PROPOFOL [Concomitant]
     Indication: INDUCTION OF ANAESTHESIA
     Dosage: 100MG
     Route: 042
  2. FENTANYL CITRATE [Concomitant]
     Indication: INDUCTION OF ANAESTHESIA
     Dosage: 100MCG
     Route: 042
  3. NITROUS OXIDE [Concomitant]
     Indication: ANAESTHESIA
  4. MIDAZOLAM [Concomitant]
     Indication: PRODUCT USED FOR UNKNOWN INDICATION
     Dosage: 4 MG
     Route: 042
  5. LABETALOL HCL [Concomitant]
     Indication: VENTRICULAR TACHYCARDIA
  6. BUPIVACAINE HCL [Concomitant]
  7. NEOSTIGMINE METHYLSULFATE [Concomitant]
  8. LIDOCAINE [Concomitant]
     Indication: PRODUCT USED FOR UNKNOWN INDICATION
  9. ROCURONIUM BROMIDE [Concomitant]
     Indication: ANAESTHESIA
     Route: 042
  10. SEVOFLURANE [Suspect]
     Indication: ANAESTHESIA

REACTIONS (1)
  - ELECTROCARDIOGRAM QT PROLONGED [None]
